FAERS Safety Report 15608551 (Version 2)
Quarter: 2018Q4

REPORT INFORMATION
  Report Type: Report from Study
  Country: GB (occurrence: GB)
  Receive Date: 20181112
  Receipt Date: 20181114
  Transmission Date: 20190205
  Serious: Yes (Other)
  Sender: FDA-Public Use
  Company Number: GB-SHIRE-GB201826352

PATIENT

DRUGS (2)
  1. CINRYZE [Suspect]
     Active Substance: HUMAN C1-ESTERASE INHIBITOR
     Indication: HEREDITARY ANGIOEDEMA
     Dosage: 1000 IU, AS REQ^D
     Route: 042
     Dates: start: 20180516
  2. CINRYZE [Suspect]
     Active Substance: HUMAN C1-ESTERASE INHIBITOR
     Dosage: 1000 IU, AS REQ^D
     Route: 042
     Dates: start: 20180526

REACTIONS (4)
  - Exposure during pregnancy [Unknown]
  - Complication of pregnancy [Unknown]
  - Foetal growth restriction [Unknown]
  - Hereditary angioedema [Unknown]
